FAERS Safety Report 5205112-0 (Version None)
Quarter: 2007Q1

REPORT INFORMATION
  Report Type: 
  Country: None (occurrence: None)
  Receive Date: 20070108
  Receipt Date: 20061225
  Transmission Date: 20070707
  Serious: Yes (Hospitalization)
  Sender: FDA-Public Use
  Company Number: GXKR2006IN08506

PATIENT
  Age: 65 Year
  Sex: Male

DRUGS (2)
  1. AMIODARONE (NGX) (AMIODARONE) TABLET, 200MG [Suspect]
     Indication: ATRIAL FIBRILLATION
     Dosage: SEE IMAGE
     Route: 048
  2. LANOXIN (DIGOXIN) TABLET [Concomitant]

REACTIONS (9)
  - DYSPNOEA [None]
  - HYPOPROTEINAEMIA [None]
  - HYPOTHYROIDISM [None]
  - PLEURAL EFFUSION [None]
  - PRODUCTIVE COUGH [None]
  - PULMONARY TOXICITY [None]
  - PYREXIA [None]
  - WHEEZING [None]
  - WOUND SECRETION [None]
